APPROVED DRUG PRODUCT: PHENYLBUTAZONE
Active Ingredient: PHENYLBUTAZONE
Strength: 100MG
Dosage Form/Route: TABLET;ORAL
Application: A087674 | Product #001
Applicant: WATSON LABORATORIES INC
Approved: Apr 21, 1982 | RLD: No | RS: No | Type: DISCN